FAERS Safety Report 7571902-2 (Version None)
Quarter: 2011Q2

REPORT INFORMATION
  Report Type: 
  Country: None (occurrence: None)
  Receive Date: 20110624
  Receipt Date: 20100831
  Transmission Date: 20111010
  Serious: No
  Sender: FDA-Public Use
  Company Number: A0878659A

PATIENT
  Age: 39 Year
  Sex: Female

DRUGS (1)
  1. VERAMYST [Suspect]
     Route: 045
     Dates: start: 20100801, end: 20100831

REACTIONS (3)
  - PALPITATIONS [None]
  - TACHYCARDIA [None]
  - HEART RATE INCREASED [None]
